FAERS Safety Report 15440793 (Version 1)
Quarter: 2018Q3

REPORT INFORMATION
  Report Type: Report from Study
  Country: CA (occurrence: CA)
  Receive Date: 20180928
  Receipt Date: 20180928
  Transmission Date: 20181010
  Serious: Yes (Other)
  Sender: FDA-Public Use
  Company Number: CA-GLAXOSMITHKLINE-CA2018GSK160491

PATIENT
  Sex: Female

DRUGS (4)
  1. SPIRIVA RESPIMAT [Suspect]
     Active Substance: TIOTROPIUM BROMIDE
     Indication: PRODUCT USED FOR UNKNOWN INDICATION
     Dosage: 2 PUFF(S), QD(2.5UG)
  2. SINGULAIR [Suspect]
     Active Substance: MONTELUKAST SODIUM
     Indication: PRODUCT USED FOR UNKNOWN INDICATION
     Dosage: 10 MG, QD
  3. SYMBICORT [Suspect]
     Active Substance: BUDESONIDE\FORMOTEROL FUMARATE DIHYDRATE
     Indication: PRODUCT USED FOR UNKNOWN INDICATION
     Dosage: 2 PUFF(S), BID
  4. SALBUTAMOL SULPHATE [Suspect]
     Active Substance: ALBUTEROL SULFATE
     Indication: PRODUCT USED FOR UNKNOWN INDICATION
     Dosage: UNK, BID

REACTIONS (16)
  - Rheumatoid arthritis [Unknown]
  - Eosinophil count abnormal [Unknown]
  - Wheezing [Unknown]
  - Asthma [Unknown]
  - Malaise [Unknown]
  - Arthralgia [Recovered/Resolved]
  - Upper respiratory tract congestion [Unknown]
  - Drug effect incomplete [Unknown]
  - Sputum discoloured [Unknown]
  - Tremor [Unknown]
  - Cough [Unknown]
  - Rhinitis [Unknown]
  - Chills [Recovered/Resolved]
  - Productive cough [Unknown]
  - Asthenia [Unknown]
  - Influenza like illness [Recovered/Resolved]
